FAERS Safety Report 8279593-2 (Version None)
Quarter: 2012Q2

REPORT INFORMATION
  Report Type: 
  Country: None (occurrence: None)
  Receive Date: 20120412
  Receipt Date: 20110815
  Transmission Date: 20120825
  Serious: No
  Sender: FDA-Public Use
  Company Number: US-ASTRAZENECA-2011SE19803

PATIENT
  Age: 59 Year
  Sex: Female
  Weight: 119.4 kg

DRUGS (3)
  1. NEXIUM [Suspect]
     Indication: GASTROOESOPHAGEAL REFLUX DISEASE
     Route: 048
  2. SIMVASTATIN [Concomitant]
  3. IBUPROFEN [Concomitant]

REACTIONS (7)
  - STRESS [None]
  - SINUS DISORDER [None]
  - DEPRESSION [None]
  - ANXIETY [None]
  - ESSENTIAL HYPERTENSION [None]
  - DIABETES MELLITUS [None]
  - NASOPHARYNGITIS [None]
